FAERS Safety Report 8516165-6 (Version None)
Quarter: 2012Q3

REPORT INFORMATION
  Report Type: 
  Country: None (occurrence: None)
  Receive Date: 20120717
  Receipt Date: 20120716
  Transmission Date: 20120928
  Serious: Yes (Hospitalization, Disabling)
  Sender: FDA-Public Use
  Company Number: DK-009507513-1207DNK005115

PATIENT

DRUGS (9)
  1. ZOCOR [Suspect]
     Dosage: STYRKE: 40 MG
     Route: 048
     Dates: start: 20040101, end: 20090301
  2. AMLODIPINE [Concomitant]
     Indication: HYPERTENSION
     Dosage: STYRKE: 5 MG
     Route: 048
  3. LOSARTAN POTASSIUM [Concomitant]
     Indication: HYPERTENSION
     Dosage: STYRKE: 100 MG
     Route: 048
  4. FUROSEMIDE [Concomitant]
     Indication: DIURETIC THERAPY
     Dosage: STYRKE: 40 MG
     Route: 048
  5. CARVEDILOL [Concomitant]
     Indication: HYPERTENSION
     Dosage: STYRKE: 25 MG
     Route: 048
  6. LANSOPRAZOL ORIFARM [Concomitant]
     Dosage: STYRKE: 30 MG
     Route: 048
  7. POTASSIUM CHLORIDE [Concomitant]
     Indication: MINERAL SUPPLEMENTATION
     Dosage: STYRKE: 750 MG
     Route: 048
  8. MOXONIDIN ACTAVIS [Concomitant]
     Indication: HYPERTENSION
     Dosage: STYRKE: 0,2 MG
     Route: 048
  9. IBUMETIN [Concomitant]
     Indication: PAIN
     Dosage: STYRKE: 600 MG
     Route: 048

REACTIONS (5)
  - GOUT [None]
  - PAIN IN EXTREMITY [None]
  - ARTHRALGIA [None]
  - MYALGIA [None]
  - OEDEMA PERIPHERAL [None]
